FAERS Safety Report 5120428-4 (Version None)
Quarter: 2006Q4

REPORT INFORMATION
  Report Type: 
  Country: None (occurrence: None)
  Receive Date: 20061004
  Receipt Date: 20060901
  Transmission Date: 20070319
  Serious: Yes (Other)
  Sender: FDA-Public Use
  Company Number: DE-GLAXOSMITHKLINE-D0050772A

PATIENT
  Age: 18 Year
  Sex: Female

DRUGS (2)
  1. DARAPRIM [Suspect]
     Indication: TOXOPLASMOSIS
     Dosage: 25MG TWICE PER DAY
     Route: 065
     Dates: start: 20060731, end: 20060828
  2. SULFADIAZIN [Suspect]
     Indication: TOXOPLASMOSIS
     Dosage: 500MG FOUR TIMES PER DAY
     Route: 065
     Dates: start: 20060731, end: 20060828

REACTIONS (7)
  - DIARRHOEA [None]
  - ERYTHROPENIA [None]
  - HEADACHE [None]
  - LEUKOPENIA [None]
  - NAUSEA [None]
  - THROMBOCYTOPENIA [None]
  - VOMITING [None]
